FAERS Safety Report 16402536 (Version 2)
Quarter: 2021Q1

REPORT INFORMATION
  Report Type: Spontaneous
  Country: US (occurrence: US)
  Receive Date: 20190607
  Receipt Date: 20210104
  Transmission Date: 20210419
  Serious: Yes (Hospitalization)
  Sender: FDA-Public Use
  Company Number: US-EMD SERONO-233744J08USA

PATIENT
  Age: 50 Year
  Sex: Female

DRUGS (7)
  1. ATENOLOL. [Concomitant]
     Active Substance: ATENOLOL
     Indication: PALPITATIONS
     Dates: start: 1998
  2. REBIF [Suspect]
     Active Substance: INTERFERON BETA-1A
     Indication: MULTIPLE SCLEROSIS
     Dosage: PREFILLED SYRINGE
     Route: 058
     Dates: start: 20060705
  3. LEXAPRO [Concomitant]
     Active Substance: ESCITALOPRAM OXALATE
     Indication: DEPRESSION
     Dates: start: 2006
  4. SOLU?MEDROL [Suspect]
     Active Substance: METHYLPREDNISOLONE SODIUM SUCCINATE
     Indication: MULTIPLE SCLEROSIS RELAPSE
     Dosage: START DATE: 17 APR 2008?SHE WAS RECENTLY ON A PREDNISONE TAPER FOR BURSITIS IN HER LEFT SHOULDER.
     Route: 042
  5. KLONOPIN [Concomitant]
     Active Substance: CLONAZEPAM
     Indication: ANXIETY
     Dates: start: 2006
  6. XANAX [Concomitant]
     Active Substance: ALPRAZOLAM
     Indication: PRODUCT USED FOR UNKNOWN INDICATION
     Dosage: AS NEEDED
  7. SOLU?MEDROL [Suspect]
     Active Substance: METHYLPREDNISOLONE SODIUM SUCCINATE
     Indication: BURSITIS

REACTIONS (10)
  - Tremor [Unknown]
  - Anger [Unknown]
  - Eye disorder [Unknown]
  - Headache [Unknown]
  - Multiple sclerosis relapse [Recovering/Resolving]
  - Mood swings [Unknown]
  - Arthralgia [Unknown]
  - Depressed mood [Unknown]
  - Muscle tightness [Recovering/Resolving]
  - Influenza like illness [Unknown]

NARRATIVE: CASE EVENT DATE: 2006
